FAERS Safety Report 4658975-1 (Version None)
Quarter: 2005Q2

REPORT INFORMATION
  Report Type: 
  Country: None (occurrence: None)
  Receive Date: 20050511
  Receipt Date: 20050414
  Transmission Date: 20051028
  Serious: Yes (Hospitalization)
  Sender: FDA-Public Use
  Company Number: CA-SANOFI-SYNTHELABO-F01200500594

PATIENT
  Sex: Male

DRUGS (9)
  1. OXALIPLATIN [Suspect]
     Indication: COLORECTAL CANCER METASTATIC
     Route: 042
  2. CAPECITABINE [Suspect]
     Route: 048
  3. BEVACIZUMAB OR PLACEBO [Suspect]
     Route: 042
  4. ZANTAC [Concomitant]
     Dosage: UNK
     Route: 065
     Dates: start: 20050104
  5. PERCOCET [Concomitant]
     Dosage: UNK
     Route: 065
  6. DIPHENHYDRAMINE HCL [Concomitant]
     Dosage: UNK
     Route: 065
     Dates: start: 20050408, end: 20050415
  7. ACETAMINOPHEN [Concomitant]
     Dosage: UNK
     Route: 065
     Dates: start: 20050413
  8. LORAZEPAM [Concomitant]
     Dosage: UNK
     Route: 065
     Dates: start: 20050405
  9. MORPHINE SULFATE [Concomitant]
     Dosage: UNK
     Route: 065
     Dates: start: 20050405

REACTIONS (10)
  - ABDOMINAL ADHESIONS [None]
  - ATRIAL FIBRILLATION [None]
  - ATRIAL FLUTTER [None]
  - ATRIOVENTRICULAR BLOCK [None]
  - DIARRHOEA [None]
  - DYSPNOEA [None]
  - INTESTINAL OBSTRUCTION [None]
  - INTESTINAL PERFORATION [None]
  - PYREXIA [None]
  - THERAPY NON-RESPONDER [None]
